FAERS Safety Report 8275180-0 (Version None)
Quarter: 2012Q2

REPORT INFORMATION
  Report Type: 
  Country: None (occurrence: None)
  Receive Date: 20120411
  Receipt Date: 20120404
  Transmission Date: 20120825
  Serious: Yes (Hospitalization, Other)
  Sender: FDA-Public Use
  Company Number: PHHY2012US026864

PATIENT
  Age: 65 Year
  Sex: Male

DRUGS (2)
  1. PREDNISONE TAB [Suspect]
     Dosage: 2 DF, NO TREATMENT
  2. ZOLPIDEM [Suspect]
     Indication: INSOMNIA
     Dosage: 2 DF, UNK
     Route: 048

REACTIONS (6)
  - AMNESIA [None]
  - SLOW RESPONSE TO STIMULI [None]
  - AUTOMATISM [None]
  - ACCIDENTAL EXPOSURE [None]
  - MENTAL STATUS CHANGES [None]
  - ABNORMAL BEHAVIOUR [None]
